FAERS Safety Report 8927864 (Version 1)
Quarter: 2012Q4

REPORT INFORMATION
  Report Type: 
  Country: US (occurrence: US)
  Receive Date: 20121127
  Receipt Date: 20121127
  Transmission Date: 20130627
  Serious: Yes (Other)
  Sender: FDA-Public Use
  Company Number: US-ROCHE-1135275

PATIENT
  Sex: Female

DRUGS (3)
  1. CELLCEPT [Suspect]
     Indication: HEART TRANSPLANT
     Route: 065
  2. PROGRAF [Concomitant]
  3. COZAAR [Concomitant]

REACTIONS (3)
  - Somnolence [Unknown]
  - Malignant melanoma [Unknown]
  - Blood glucose increased [Unknown]
